FAERS Safety Report 16707209 (Version 1)
Quarter: 2019Q3

REPORT INFORMATION
  Report Type: Spontaneous
  Country: CN (occurrence: CN)
  Receive Date: 20190815
  Receipt Date: 20190815
  Transmission Date: 20191004
  Serious: Yes (Other)
  Sender: FDA-Public Use
  Company Number: CN-PFIZER INC-2019343635

PATIENT
  Age: 61 Year
  Sex: Female
  Weight: 66 kg

DRUGS (2)
  1. DANSHEN [Concomitant]
     Active Substance: HERBALS
     Dosage: 10 DF, 3X/DAY
     Route: 048
     Dates: start: 20190602, end: 20190802
  2. LIPITOR [Suspect]
     Active Substance: ATORVASTATIN CALCIUM
     Indication: CORONARY ARTERY DISEASE
     Dosage: 20 MG, 3X/DAY
     Route: 048
     Dates: start: 20190602, end: 20190802

REACTIONS (5)
  - Asthenia [Recovering/Resolving]
  - Blood creatine phosphokinase increased [Recovering/Resolving]
  - Limb discomfort [Recovering/Resolving]
  - Oedema peripheral [Recovering/Resolving]
  - Off label use [Recovered/Resolved]

NARRATIVE: CASE EVENT DATE: 20190602
